FAERS Safety Report 16101737 (Version 1)
Quarter: 2019Q1

REPORT INFORMATION
  Report Type: Spontaneous
  Country: US (occurrence: US)
  Receive Date: 20190321
  Receipt Date: 20190321
  Transmission Date: 20190418
  Serious: No
  Sender: FDA-Public Use
  Company Number: US-TEVA-2019-US-1029322

PATIENT
  Sex: Male

DRUGS (3)
  1. CLONAZEPAM SOLCO [Suspect]
     Active Substance: CLONAZEPAM
     Route: 065
  2. CLONAZEPAM TEVA [Suspect]
     Active Substance: CLONAZEPAM
     Indication: ANXIETY
     Dosage: 1 MILLIGRAM DAILY; SINCE 10 YEARS
     Route: 065
  3. CLONAZEPAM TEVA [Suspect]
     Active Substance: CLONAZEPAM
     Indication: PANIC ATTACK
     Dosage: .5 MILLIGRAM DAILY; SINCE 10 YEARS
     Route: 065

REACTIONS (1)
  - Fatigue [Unknown]
